FAERS Safety Report 15802565 (Version 1)
Quarter: 2019Q1

REPORT INFORMATION
  Report Type: Spontaneous
  Country: CN (occurrence: CN)
  Receive Date: 20190109
  Receipt Date: 20190109
  Transmission Date: 20190417
  Serious: Yes (Hospitalization)
  Sender: FDA-Public Use
  Company Number: CN-LANNETT COMPANY, INC.-CN-2018LAN004648

PATIENT
  Age: 85 Year
  Sex: Male
  Weight: 60 kg

DRUGS (9)
  1. ESOMEPRAZOLE MAGNESIUM. [Suspect]
     Active Substance: ESOMEPRAZOLE MAGNESIUM
     Dosage: 20 MG, QD
     Route: 048
     Dates: end: 20171207
  2. ESOMEPRAZOLE MAGNESIUM. [Suspect]
     Active Substance: ESOMEPRAZOLE MAGNESIUM
     Indication: DYSPHAGIA
     Dosage: 20 MG, QD
     Route: 048
     Dates: start: 20170717, end: 20170809
  3. ESOMEPRAZOLE MAGNESIUM. [Suspect]
     Active Substance: ESOMEPRAZOLE MAGNESIUM
     Dosage: 20 MG, QD
     Route: 048
     Dates: start: 20170908, end: 20170919
  4. ESOMEPRAZOLE MAGNESIUM. [Suspect]
     Active Substance: ESOMEPRAZOLE MAGNESIUM
     Dosage: 20 MG, QD
     Route: 048
     Dates: start: 20170923, end: 20171202
  5. PANTOPRAZOLE SODIUM. [Suspect]
     Active Substance: PANTOPRAZOLE SODIUM
     Indication: DYSPHAGIA
     Dosage: 80 MG, BID
     Route: 042
     Dates: start: 20170702, end: 20170716
  6. PANTOPRAZOLE SODIUM. [Suspect]
     Active Substance: PANTOPRAZOLE SODIUM
     Dosage: 80 MG, BID
     Route: 042
     Dates: start: 20170920, end: 20170922
  7. PANTOPRAZOLE SODIUM. [Suspect]
     Active Substance: PANTOPRAZOLE SODIUM
     Dosage: 80 MG, BID
     Route: 042
     Dates: start: 20171203, end: 20171207
  8. IRON SUCROSE [Concomitant]
     Active Substance: IRON SUCROSE
     Indication: IRON DEFICIENCY ANAEMIA
     Dosage: 100 MG, THREE TIMES A WEEK (INTERMITTENTLY)
     Route: 042
  9. PANTOPRAZOLE SODIUM. [Suspect]
     Active Substance: PANTOPRAZOLE SODIUM
     Dosage: 80 MG, BID
     Route: 042
     Dates: start: 20170810, end: 20170907

REACTIONS (4)
  - Neutropenia [Recovered/Resolved]
  - Bone marrow failure [Recovered/Resolved]
  - Thrombocytopenia [Recovered/Resolved]
  - White blood cell count decreased [Recovered/Resolved]

NARRATIVE: CASE EVENT DATE: 20171205
